FAERS Safety Report 11228006 (Version 1)
Quarter: 2015Q2

REPORT INFORMATION
  Report Type: Spontaneous
  Country: US (occurrence: US)
  Receive Date: 20150630
  Receipt Date: 20150630
  Transmission Date: 20150821
  Serious: Yes (Other)
  Sender: FDA-Public Use
  Company Number: US-PFIZER INC-2015213208

PATIENT
  Age: 37 Year
  Sex: Male
  Weight: 104 kg

DRUGS (7)
  1. AMBIEN [Concomitant]
     Active Substance: ZOLPIDEM TARTRATE
     Indication: SLEEP DISORDER
  2. VITAMIN C [Suspect]
     Active Substance: ASCORBIC ACID
     Dosage: 1000 MG, (AS DIRECTED)
     Dates: end: 2015
  3. VITAMIN B12 [Suspect]
     Active Substance: CYANOCOBALAMIN
     Dosage: 1000 ?G, (AS DIRECTED FOR FOUR AND FIVE MONTHS)
     Route: 048
     Dates: end: 2015
  4. DEVIL^S CLAW [Suspect]
     Active Substance: HERBALS
     Dosage: 510 MG, (AS DIRECTED)
     Route: 048
     Dates: end: 2015
  5. GLUCOSAMINE CHONDROITIN + MSM [Suspect]
     Active Substance: CHONDROITIN SULFATE (BOVINE)\DIMETHYL SULFONE\GLUCOSAMINE SULFATE
     Dosage: (AS DIRECTED FOR SEVERAL MONTHS)
     Route: 048
     Dates: end: 2015
  6. CELEBREX [Suspect]
     Active Substance: CELECOXIB
     Indication: ARTHRITIS
     Dosage: UNK
     Dates: start: 2015, end: 2015
  7. CALCIUM PANGAMATE. [Suspect]
     Active Substance: CALCIUM PANGAMATE
     Dosage: 50 MG, (AS DIRECTED)
     Route: 048
     Dates: end: 2015

REACTIONS (10)
  - Headache [Not Recovered/Not Resolved]
  - Nausea [Unknown]
  - Middle insomnia [None]
  - Blood bilirubin increased [Unknown]
  - Sensory disturbance [Not Recovered/Not Resolved]
  - Fatigue [None]
  - Condition aggravated [None]
  - Poor quality sleep [Not Recovered/Not Resolved]
  - Cold sweat [Unknown]
  - Hypertension [Unknown]

NARRATIVE: CASE EVENT DATE: 201502
